FAERS Safety Report 6974126-2 (Version None)
Quarter: 2010Q3

REPORT INFORMATION
  Report Type: 
  Country: None (occurrence: None)
  Receive Date: 20100909
  Receipt Date: 20100831
  Transmission Date: 20110219
  Serious: Yes (Other)
  Sender: FDA-Public Use
  Company Number: US-PFIZER INC-2010109958

PATIENT
  Sex: Male
  Weight: 113.38 kg

DRUGS (12)
  1. CHANTIX [Suspect]
     Indication: SMOKING CESSATION THERAPY
     Dosage: 0.5 MG, 1X/DAY
     Route: 048
     Dates: start: 20100831
  2. TRICOR [Concomitant]
     Dosage: 145 MG, 1X/DAY
     Route: 048
  3. ACTOS [Concomitant]
     Indication: DIABETES MELLITUS
     Dosage: 30 MG, 1X/DAY
     Route: 048
  4. GLYBURIDE [Concomitant]
     Indication: DIABETES MELLITUS
     Dosage: 5 MG, 2X/DAY
  5. EFFEXOR [Concomitant]
     Indication: NERVOUSNESS
     Dosage: 300 MG, 1X/DAY
     Route: 048
  6. PROPRANOLOL [Concomitant]
     Indication: NERVOUSNESS
     Dosage: 10 MG, 2X/DAY
  7. BUPROPION [Concomitant]
     Indication: DEPRESSION
     Dosage: 150 MG, 1X/DAY
  8. OMEPRAZOLE [Concomitant]
     Indication: DYSPEPSIA
     Dosage: 40 MG, 1X/DAY
  9. RISPERIDONE [Concomitant]
     Dosage: 4 MG, 1X/DAY
  10. SEROQUEL [Concomitant]
     Dosage: 400 MG, 1X/DAY
     Route: 048
  11. SIMVASTATIN [Concomitant]
     Dosage: 40 MG, 1X/DAY
  12. METFORMIN [Concomitant]
     Dosage: 100 MG, 2X/DAY

REACTIONS (2)
  - CHEILITIS [None]
  - LIP SWELLING [None]
